FAERS Safety Report 25796278 (Version 1)
Quarter: 2025Q3

REPORT INFORMATION
  Report Type: Spontaneous
  Country: CN (occurrence: CN)
  Receive Date: 20250912
  Receipt Date: 20250912
  Transmission Date: 20251021
  Serious: Yes (Other)
  Sender: DR REDDYS
  Company Number: None

PATIENT
  Age: 38 Year
  Sex: Male
  Weight: 55 kg

DRUGS (2)
  1. OLANZAPINE [Suspect]
     Active Substance: OLANZAPINE
     Indication: Antipsychotic therapy
     Dosage: 10MG,QD
     Route: 048
     Dates: start: 20250120, end: 20250830
  2. RISPERIDONE [Suspect]
     Active Substance: RISPERIDONE
     Indication: Antipsychotic therapy
     Dosage: 2.5MG,BID
     Route: 048
     Dates: start: 20250120, end: 20250830

REACTIONS (1)
  - Gaze palsy [Recovering/Resolving]

NARRATIVE: CASE EVENT DATE: 20250820
